FAERS Safety Report 7349764-8 (Version None)
Quarter: 2011Q1

REPORT INFORMATION
  Report Type: 
  Country: None (occurrence: None)
  Receive Date: 20110314
  Receipt Date: 20110309
  Transmission Date: 20110831
  Serious: Yes (Other)
  Sender: FDA-Public Use
  Company Number: US-SANOFI-AVENTIS-2011SA014593

PATIENT
  Age: 43 Year
  Sex: Female

DRUGS (1)
  1. ALLEGRA [Suspect]
     Route: 048
     Dates: start: 20110304, end: 20110304

REACTIONS (6)
  - RASH PRURITIC [None]
  - SWELLING FACE [None]
  - ANGIOEDEMA [None]
  - LIP SWELLING [None]
  - SWOLLEN TONGUE [None]
  - ERYTHEMA [None]
